FAERS Safety Report 15470289 (Version 7)
Quarter: 2019Q1

REPORT INFORMATION
  Report Type: Report from Study
  Country: US (occurrence: US)
  Receive Date: 20181005
  Receipt Date: 20190311
  Transmission Date: 20190417
  Serious: Yes (Other)
  Sender: FDA-Public Use
  Company Number: US-TESAROUBC-US-2018TSO04115

PATIENT
  Age: 63 Year
  Sex: Female

DRUGS (12)
  1. ZEJULA [Suspect]
     Active Substance: NIRAPARIB
     Indication: ENDOMETRIAL NEOPLASM
     Dosage: UNK, UNK
     Dates: start: 20180801, end: 201808
  2. MULTIVITAMINS [Concomitant]
     Active Substance: VITAMINS
     Indication: PRODUCT USED FOR UNKNOWN INDICATION
  3. FOLIC ACID. [Concomitant]
     Active Substance: FOLIC ACID
     Indication: PRODUCT USED FOR UNKNOWN INDICATION
  4. GABAPENTIN. [Concomitant]
     Active Substance: GABAPENTIN
     Indication: PRODUCT USED FOR UNKNOWN INDICATION
  5. MAGNESIUM [Concomitant]
     Active Substance: MAGNESIUM
     Indication: PRODUCT USED FOR UNKNOWN INDICATION
  6. ZEJULA [Suspect]
     Active Substance: NIRAPARIB
     Indication: UTERINE CANCER
     Dosage: 200 MG, QD
     Route: 048
     Dates: start: 201808, end: 20180821
  7. VITAMIN D [Concomitant]
     Active Substance: CHOLECALCIFEROL
     Indication: PRODUCT USED FOR UNKNOWN INDICATION
  8. VITAMIN B COMPLEX [Concomitant]
     Active Substance: CYANOCOBALAMIN\DEXPANTHENOL\NIACINAMIDE\PYRIDOXINE HYDROCHLORIDE\RIBOFLAVIN 5^-PHOSPHATE SODIUM\THIAMINE HYDROCHLORIDE\VITAMIN B COMPLEX
     Indication: PRODUCT USED FOR UNKNOWN INDICATION
  9. ALEVE [Concomitant]
     Active Substance: NAPROXEN SODIUM
     Indication: PRODUCT USED FOR UNKNOWN INDICATION
  10. ZEJULA [Suspect]
     Active Substance: NIRAPARIB
     Dosage: 100 MG, QPM WITH FOOD
     Route: 048
     Dates: start: 20180907
  11. DEXILANT [Concomitant]
     Active Substance: DEXLANSOPRAZOLE
     Indication: PRODUCT USED FOR UNKNOWN INDICATION
  12. GLUCOSAMINE [Concomitant]
     Active Substance: GLUCOSAMINE
     Indication: PRODUCT USED FOR UNKNOWN INDICATION

REACTIONS (19)
  - Pain [Unknown]
  - Feeding disorder [Not Recovered/Not Resolved]
  - Myalgia [Unknown]
  - Pruritus [Not Recovered/Not Resolved]
  - Disease progression [Unknown]
  - Product use in unapproved indication [Not Recovered/Not Resolved]
  - Limb discomfort [Unknown]
  - Product dose omission [Unknown]
  - Dysgeusia [Not Recovered/Not Resolved]
  - Muscle strain [Recovered/Resolved]
  - Nausea [Not Recovered/Not Resolved]
  - Rash macular [Unknown]
  - Increased tendency to bruise [Not Recovered/Not Resolved]
  - Neuropathy peripheral [Not Recovered/Not Resolved]
  - Platelet count decreased [Recovered/Resolved]
  - Full blood count increased [Unknown]
  - Carbohydrate antigen 125 increased [Unknown]
  - Blood creatinine increased [Not Recovered/Not Resolved]
  - Arthralgia [Unknown]

NARRATIVE: CASE EVENT DATE: 2018
